FAERS Safety Report 8330418-6 (Version None)
Quarter: 2012Q2

REPORT INFORMATION
  Report Type: 
  Country: None (occurrence: None)
  Receive Date: 20120502
  Receipt Date: 20120403
  Transmission Date: 20120825
  Serious: No
  Sender: FDA-Public Use
  Company Number: US-AMGEN-USASP2011064060

PATIENT
  Age: 35 Year
  Sex: Female
  Weight: 62.1 kg

DRUGS (6)
  1. NORETHINDRONE ACETATE [Concomitant]
     Indication: CONTRACEPTION
     Dosage: UNK
     Route: 048
  2. IBUPROFEN [Concomitant]
     Indication: RHEUMATOID ARTHRITIS
     Dosage: UNK UNK, TID
     Route: 048
  3. CALCIUM WITH VITAMIN D             /00944201/ [Suspect]
     Indication: OSTEOPOROSIS
     Dosage: UNK UNK, TID
     Route: 048
  4. ENBREL [Suspect]
     Indication: RHEUMATOID ARTHRITIS
     Dosage: 50 MG, QWK
     Route: 058
     Dates: start: 20070414, end: 20110101
  5. PREDNISONE [Concomitant]
     Indication: RHEUMATOID ARTHRITIS
     Dosage: UNK UNK, QD
     Route: 048
  6. ENBREL [Suspect]
     Dosage: 50 MG, QWK
     Route: 058
     Dates: start: 20111120

REACTIONS (1)
  - RHEUMATOID ARTHRITIS [None]
